FAERS Safety Report 9228057 (Version 1)
Quarter: 2013Q2

REPORT INFORMATION
  Report Type: Spontaneous
  Country: JP (occurrence: JP)
  Receive Date: 20130412
  Receipt Date: 20130412
  Transmission Date: 20140414
  Serious: Yes (Other)
  Sender: FDA-Public Use
  Company Number: JP-OTSUKA-JP-2013-10917

PATIENT
  Age: 75 Year
  Sex: Female

DRUGS (1)
  1. PLETAAL [Suspect]
     Route: 048

REACTIONS (1)
  - Hypoglycaemia [Unknown]
